FAERS Safety Report 7532603-X (Version None)
Quarter: 2011Q2

REPORT INFORMATION
  Report Type: 
  Country: None (occurrence: None)
  Receive Date: 20110608
  Receipt Date: 20110603
  Transmission Date: 20111010
  Serious: Yes (Hospitalization)
  Sender: FDA-Public Use
  Company Number: PHHY2011US48793

PATIENT
  Age: 15 Year
  Sex: Female

DRUGS (2)
  1. TOBI [Suspect]
     Dosage: 300 MG, BID
     Dates: start: 20071211, end: 20110607
  2. PULMOZYME [Concomitant]
     Dosage: 2.5 MG, QD

REACTIONS (1)
  - BACTERIAL INFECTION [None]
